FAERS Safety Report 4325219-X (Version None)
Quarter: 2004Q1

REPORT INFORMATION
  Report Type: 
  Country: None (occurrence: None)
  Receive Date: 20040324
  Receipt Date: 20040309
  Transmission Date: 20041129
  Serious: No
  Sender: FDA-Public Use
  Company Number: 04H-062-0253321-00

PATIENT

DRUGS (1)
  1. HEPARIN SODIUM [Suspect]
     Indication: PROPHYLAXIS

REACTIONS (3)
  - CEREBRAL ISCHAEMIA [None]
  - HEPARIN-INDUCED THROMBOCYTOPENIA [None]
  - NERVOUS SYSTEM DISORDER [None]
